FAERS Safety Report 16105755 (Version 1)
Quarter: 2019Q1

REPORT INFORMATION
  Report Type: Spontaneous
  Country: US (occurrence: US)
  Receive Date: 20190322
  Receipt Date: 20190322
  Transmission Date: 20190418
  Serious: No
  Sender: FDA-Public Use
  Company Number: US-BAYER-2019-055915

PATIENT
  Age: 91 Year
  Sex: Male

DRUGS (1)
  1. MAGNEVIST [Suspect]
     Active Substance: GADOPENTETATE DIMEGLUMINE
     Dosage: UNK UNK, ONCE
     Route: 042
     Dates: start: 20190304

REACTIONS (1)
  - Nausea [None]

NARRATIVE: CASE EVENT DATE: 20190304
